FAERS Safety Report 18898476 (Version 1)
Quarter: 2021Q1

REPORT INFORMATION
  Report Type: Spontaneous
  Country: GB (occurrence: GB)
  Receive Date: 20210216
  Receipt Date: 20210216
  Transmission Date: 20210420
  Serious: No
  Sender: FDA-Public Use
  Company Number: GB-ALKEM LABORATORIES LIMITED-GB-ALKEM-2020-08918

PATIENT
  Age: 55 Year
  Sex: Male
  Weight: 116 kg

DRUGS (13)
  1. ACIDEX [Concomitant]
     Indication: PRODUCT USED FOR UNKNOWN INDICATION
     Dosage: 10?20ML TO BE TAKEN AFTER MEALS AND AT BEDTIME
     Route: 065
     Dates: start: 20201002
  2. BECLOMETASONE [Concomitant]
     Active Substance: BECLOMETHASONE DIPROPIONATE
     Indication: PRODUCT USED FOR UNKNOWN INDICATION
     Dosage: ONE SPRAY TO BE USED IN EACH NOSTRIL TWICE A DAY
     Route: 065
     Dates: start: 20201002
  3. FEXOFENADINE [Concomitant]
     Active Substance: FEXOFENADINE HYDROCHLORIDE
     Indication: PRODUCT USED FOR UNKNOWN INDICATION
     Dosage: ONE TO BE TAKEN EACH DAY
     Route: 065
     Dates: start: 20201002
  4. METHOCARBAMOL. [Concomitant]
     Active Substance: METHOCARBAMOL
     Indication: PRODUCT USED FOR UNKNOWN INDICATION
     Dosage: TAKE 2 TABLETS THREE TIMES A DAY
     Route: 065
     Dates: start: 20201002
  5. TRAMADOL. [Concomitant]
     Active Substance: TRAMADOL
     Indication: PRODUCT USED FOR UNKNOWN INDICATION
     Dosage: TAKE ONE THREE TIMES A DAY
     Route: 065
     Dates: start: 20201023
  6. COCODAMOL [Concomitant]
     Active Substance: ACETAMINOPHEN\CODEINE PHOSPHATE
     Indication: PRODUCT USED FOR UNKNOWN INDICATION
     Dosage: ONE OR TWO TO BE TAKEN FOUR TIMES A DAY WHEN REQUIRED
     Route: 065
     Dates: start: 20201002
  7. SODIUM CROMOGLICATE [Concomitant]
     Active Substance: CROMOLYN SODIUM
     Indication: PRODUCT USED FOR UNKNOWN INDICATION
     Dosage: ONE DROP TO BE USED IN THE AFFECTED EYE(S) FOUR TIMES A DAY
     Route: 065
     Dates: start: 20201002
  8. PREGABALIN. [Suspect]
     Active Substance: PREGABALIN
     Indication: PRODUCT USED FOR UNKNOWN INDICATION
     Dosage: WEEK 1? TAKE GABAPENTIN 900MG BD (CONTINUED IN NARRATIVE)
     Route: 065
     Dates: start: 20201026, end: 20201103
  9. PROMETHAZINE HYDROCHLORIDE. [Concomitant]
     Active Substance: PROMETHAZINE HYDROCHLORIDE
     Indication: PRODUCT USED FOR UNKNOWN INDICATION
     Dosage: ONE TO BE TAKEN AT NIGHT
     Route: 065
     Dates: start: 20201006
  10. PROPRANOLOL [Concomitant]
     Active Substance: PROPRANOLOL HYDROCHLORIDE
     Indication: PRODUCT USED FOR UNKNOWN INDICATION
     Dosage: ONE TO BE TAKEN EACH DAY
     Route: 065
     Dates: start: 20201002
  11. GABAPENTIN. [Concomitant]
     Active Substance: GABAPENTIN
     Indication: PRODUCT USED FOR UNKNOWN INDICATION
     Dosage: THREE TO BE TAKEN THREE TIMES A DAY
     Route: 065
     Dates: start: 20201002
  12. OMEPRAZOLE. [Concomitant]
     Active Substance: OMEPRAZOLE
     Indication: PRODUCT USED FOR UNKNOWN INDICATION
     Dosage: ONE TO BE TAKEN EACH DAY
     Route: 065
     Dates: start: 20201002
  13. ZOPICLONE [Concomitant]
     Active Substance: ZOPICLONE
     Indication: PRODUCT USED FOR UNKNOWN INDICATION
     Dosage: ONE TO BE TAKEN AT NIGHT
     Route: 065
     Dates: start: 20201002

REACTIONS (1)
  - Pruritus [Recovered/Resolved]

NARRATIVE: CASE EVENT DATE: 20201102
